FAERS Safety Report 8854007 (Version 1)
Quarter: 2012Q4

REPORT INFORMATION
  Report Type: Spontaneous
  Country: US (occurrence: None)
  Receive Date: 20121019
  Receipt Date: 20121019
  Transmission Date: 20130627
  Serious: No
  Sender: FDA-Public Use
  Company Number: None

PATIENT
  Age: 81 Year
  Sex: Female
  Weight: 56.7 kg

DRUGS (1)
  1. BUDESONIDE [Suspect]
     Indication: BREATHING DIFFICULT
     Dosage: one vial, twice daily, nebulizer
     Route: 055
     Dates: start: 20120806, end: 20120926

REACTIONS (6)
  - Oral pain [None]
  - Oral mucosal blistering [None]
  - Tongue coated [None]
  - Glossodynia [None]
  - Glossodynia [None]
  - Candidiasis [None]
